FAERS Safety Report 5974812-7 (Version None)
Quarter: 2008Q4

REPORT INFORMATION
  Report Type: 
  Country: None (occurrence: None)
  Receive Date: 20081201
  Receipt Date: 20081125
  Transmission Date: 20090506
  Serious: Yes (Hospitalization)
  Sender: FDA-Public Use
  Company Number: FR-PFIZER INC-2008100409

PATIENT
  Sex: Female

DRUGS (6)
  1. CAMPTOSAR [Suspect]
     Route: 042
     Dates: start: 20080820
  2. CETUXIMAB [Suspect]
     Route: 042
     Dates: start: 20080820
  3. LEUCOVORIN CALCIUM [Suspect]
     Route: 042
     Dates: start: 20080820
  4. FLUOROURACIL [Suspect]
     Route: 042
     Dates: start: 20080820
  5. ZOPHREN [Suspect]
     Dosage: FREQ:1 DF, 2 MG/ML, CYCLIC
     Route: 042
     Dates: start: 20080820
  6. DEXCHLORPHENIRAMINE MALEATE [Concomitant]
     Dates: start: 20080820

REACTIONS (3)
  - HEADACHE [None]
  - HYPERTENSION [None]
  - MYODESOPSIA [None]
